FAERS Safety Report 10313960 (Version 3)
Quarter: 2014Q4

REPORT INFORMATION
  Report Type: Report from Study
  Country: US (occurrence: US)
  Receive Date: 20140718
  Receipt Date: 20141211
  Transmission Date: 20150528
  Serious: Yes (Other)
  Sender: FDA-Public Use
  Company Number: US-SA-2014SA089428

PATIENT
  Age: 46 Year
  Sex: Male

DRUGS (2)
  1. COPAXONE [Concomitant]
     Active Substance: GLATIRAMER ACETATE
     Indication: MULTIPLE SCLEROSIS
     Dates: start: 20120101, end: 20140606
  2. AUBAGIO [Suspect]
     Active Substance: TERIFLUNOMIDE
     Indication: MULTIPLE SCLEROSIS
     Dosage: DOSE - 14 ( UNITS UNSPECIFIED )
     Route: 048
     Dates: start: 20140613

REACTIONS (6)
  - Pain in extremity [Recovering/Resolving]
  - Neuropathy peripheral [Unknown]
  - Nuclear magnetic resonance imaging abnormal [Recovering/Resolving]
  - Paraesthesia [Unknown]
  - Hypoaesthesia [Recovering/Resolving]
  - Multiple sclerosis relapse [Recovering/Resolving]
